FAERS Safety Report 23559726 (Version 1)
Quarter: 2024Q1

REPORT INFORMATION
  Report Type: Spontaneous
  Country: US (occurrence: US)
  Receive Date: 20240223
  Receipt Date: 20240223
  Transmission Date: 20240409
  Serious: No
  Sender: FDA-Public Use
  Company Number: US-PFIZER INC-202400044524

PATIENT
  Age: 73 Year
  Sex: Female
  Weight: 83.46 kg

DRUGS (5)
  1. PAXLOVID [Suspect]
     Active Substance: NIRMATRELVIR\RITONAVIR
     Indication: COVID-19 treatment
     Dosage: 300-100 MILLIGRAMS, 2X/DAY
     Route: 048
     Dates: start: 202402
  2. METOPROLOL [Concomitant]
     Active Substance: METOPROLOL
     Indication: Cardiac disorder
     Dosage: 12.5 MG, 1X/DAY
  3. CILOSTAZOL [Concomitant]
     Active Substance: CILOSTAZOL
     Indication: Cerebrovascular accident
     Dosage: 50 MG, 2X/DAY (MORNING AND BEFORE I GO TO BED)
  4. TRULICITY [Concomitant]
     Active Substance: DULAGLUTIDE
     Indication: Gastrointestinal disorder
     Dosage: 3.5 MG, WEEKLY
  5. ALBUTEROL [Concomitant]
     Active Substance: ALBUTEROL
     Indication: Dyspnoea
     Dosage: AS NEEDED

REACTIONS (1)
  - Dysgeusia [Unknown]
